FAERS Safety Report 13613796 (Version 3)
Quarter: 2017Q3

REPORT INFORMATION
  Report Type: Report from Study
  Country: US (occurrence: US)
  Receive Date: 20170606
  Receipt Date: 20170711
  Transmission Date: 20171127
  Serious: Yes (Other)
  Sender: FDA-Public Use
  Company Number: US-ROCHE-1943492

PATIENT
  Sex: Female
  Weight: 65.83 kg

DRUGS (36)
  1. GABAPENTIN. [Concomitant]
     Active Substance: GABAPENTIN
     Dosage: 1 CAP AT AM AND 2 CAP AT BEDTIME
     Route: 048
  2. ULTRAM [Concomitant]
     Active Substance: TRAMADOL HYDROCHLORIDE
     Route: 048
  3. CYCLOBENZAPRINE. [Concomitant]
     Active Substance: CYCLOBENZAPRINE
     Route: 048
  4. HYDROCHLOROTHIAZIDE. [Concomitant]
     Active Substance: HYDROCHLOROTHIAZIDE
     Dosage: 1/2 IN A DAY
     Route: 048
  5. HYDROXYZINE HYDROCHLORIDE. [Concomitant]
     Active Substance: HYDROXYZINE HYDROCHLORIDE
     Route: 048
  6. FOLIC ACID. [Concomitant]
     Active Substance: FOLIC ACID
     Route: 048
  7. PROLIA [Concomitant]
     Active Substance: DENOSUMAB
     Dosage: SOLUTION
     Route: 065
  8. MECLIZINE [Concomitant]
     Active Substance: MECLIZINE HYDROCHLORIDE
     Route: 048
  9. LACTAID (UNITED KINGDOM) [Concomitant]
     Dosage: AS DIRECTED
     Route: 065
  10. ACTEMRA [Suspect]
     Active Substance: TOCILIZUMAB
     Indication: RHEUMATOID ARTHRITIS
     Dosage: ONGOING:NO
     Route: 058
  11. LORTAB [Concomitant]
     Active Substance: ACETAMINOPHEN\HYDROCODONE BITARTRATE
     Dosage: 9/325 MGS
     Route: 065
  12. LANTUS [Concomitant]
     Active Substance: INSULIN GLARGINE
     Dosage: 50 UNITS (BEDTIME)
     Route: 065
  13. GLIPIZIDE. [Concomitant]
     Active Substance: GLIPIZIDE
     Route: 048
  14. PRAVASTATIN. [Concomitant]
     Active Substance: PRAVASTATIN
     Route: 048
  15. DICYCLOMINE [Concomitant]
     Active Substance: DICYCLOMINE HYDROCHLORIDE
     Route: 048
  16. OMEPRAZOLE. [Concomitant]
     Active Substance: OMEPRAZOLE
     Route: 048
  17. CETIRIZINE [Concomitant]
     Active Substance: CETIRIZINE HYDROCHLORIDE
     Route: 048
  18. NYSTATIN. [Concomitant]
     Active Substance: NYSTATIN
     Dosage: 100000
     Route: 048
  19. ORPHENADRINE [Concomitant]
     Active Substance: ORPHENADRINE
     Route: 048
  20. METROCREAM [Concomitant]
     Active Substance: METRONIDAZOLE
     Route: 065
  21. HYDROCORTISONE. [Concomitant]
     Active Substance: HYDROCORTISONE
  22. TAMOXIFEN [Concomitant]
     Active Substance: TAMOXIFEN
     Route: 048
  23. AMBIEN [Concomitant]
     Active Substance: ZOLPIDEM TARTRATE
     Route: 048
  24. PROMETHAZINE [Concomitant]
     Active Substance: PROMETHAZINE\PROMETHAZINE HYDROCHLORIDE
     Dosage: ONCE IN 4-6 HOURS
     Route: 048
  25. LONOX [Concomitant]
     Active Substance: ATROPINE SULFATE\DIPHENOXYLATE HYDROCHLORIDE
     Dosage: 0.025 -2.5 MG
     Route: 048
  26. FERROUS SULFATE. [Concomitant]
     Active Substance: FERROUS SULFATE
     Dosage: 1-2 IN 1 DAY
     Route: 048
  27. NOVOLOG [Concomitant]
     Active Substance: INSULIN ASPART
     Dosage: 100 UNIT, 5 UNIT
     Route: 065
  28. CYMBALTA [Concomitant]
     Active Substance: DULOXETINE HYDROCHLORIDE
     Route: 048
  29. GLUCOPHAGE [Concomitant]
     Active Substance: METFORMIN HYDROCHLORIDE
     Route: 048
  30. FOSINOPRIL [Concomitant]
     Active Substance: FOSINOPRIL
     Route: 048
  31. AMITRIPTYLINE [Concomitant]
     Active Substance: AMITRIPTYLINE
     Route: 048
  32. BIOTIN [Concomitant]
     Active Substance: BIOTIN
     Route: 065
  33. RESTASIS [Concomitant]
     Active Substance: CYCLOSPORINE
     Dosage: 1 GTT EVERY 12 HOURS
     Route: 065
  34. XANAX [Concomitant]
     Active Substance: ALPRAZOLAM
     Route: 048
  35. KLOR-CON [Concomitant]
     Active Substance: POTASSIUM CHLORIDE
     Route: 048
  36. CLEARLAX [Concomitant]
     Active Substance: POLYETHYLENE GLYCOL 3350
     Dosage: FOR RECONSTITUTION ,PRN
     Route: 065

REACTIONS (23)
  - Paraesthesia [Unknown]
  - Arthralgia [Unknown]
  - Back pain [Unknown]
  - Palpitations [Unknown]
  - Mouth ulceration [Unknown]
  - Neck pain [Unknown]
  - Decreased appetite [Unknown]
  - Dry eye [Unknown]
  - Cataract [Not Recovered/Not Resolved]
  - Musculoskeletal stiffness [Unknown]
  - Abdominal pain [Unknown]
  - Panic attack [Unknown]
  - Fall [Unknown]
  - Hand fracture [Unknown]
  - Vision blurred [Not Recovered/Not Resolved]
  - Hypoaesthesia [Unknown]
  - Insomnia [Unknown]
  - Tooth extraction [Unknown]
  - Diarrhoea [Unknown]
  - Chills [Unknown]
  - Fatigue [Unknown]
  - Dyspnoea [Unknown]
  - Pollakiuria [Unknown]
